FAERS Safety Report 4428561-7 (Version None)
Quarter: 2004Q3

REPORT INFORMATION
  Report Type: 
  Country: None (occurrence: None)
  Receive Date: 20040818
  Receipt Date: 20031117
  Transmission Date: 20050211
  Serious: Yes (Death, Hospitalization)
  Sender: FDA-Public Use
  Company Number: US-BRISTOL-MYERS SQUIBB COMPANY-12436853

PATIENT
  Age: 7 Decade
  Sex: Female

DRUGS (6)
  1. BLENOXANE [Suspect]
     Indication: HODGKIN'S DISEASE
     Dosage: EVERY 2 WEEKS FOR THE PAST 9 WEEKS: 10 U/M2
     Route: 042
     Dates: start: 20030709, end: 20031031
  2. VINBLASTINE SULFATE [Concomitant]
     Indication: HODGKIN'S DISEASE
  3. ADRIAMYCIN PFS [Concomitant]
     Indication: HODGKIN'S DISEASE
  4. ANZEMET [Concomitant]
     Indication: PREMEDICATION
  5. DECADRON [Concomitant]
     Indication: PREMEDICATION
  6. DTIC-DOME [Concomitant]
     Indication: HODGKIN'S DISEASE

REACTIONS (1)
  - PULMONARY TOXICITY [None]
